FAERS Safety Report 9114981 (Version 2)
Quarter: 2013Q1

REPORT INFORMATION
  Report Type: Report from Study
  Country: BE (occurrence: BE)
  Receive Date: 20130208
  Receipt Date: 20130306
  Transmission Date: 20140127
  Serious: Yes (Death, Hospitalization)
  Sender: FDA-Public Use
  Company Number: BE-ROCHE-1188933

PATIENT
  Age: 75 Year
  Sex: Male

DRUGS (10)
  1. BEVACIZUMAB [Suspect]
     Indication: COLON CANCER
     Route: 042
     Dates: start: 20120924, end: 20121006
  2. BEVACIZUMAB [Suspect]
     Indication: RECTAL CANCER
  3. IRINOTECAN [Suspect]
     Indication: COLON CANCER
     Route: 042
     Dates: start: 20120924, end: 20121008
  4. LEUCOVORIN [Suspect]
     Indication: COLON CANCER
     Route: 042
     Dates: start: 20120924, end: 20121008
  5. 5-FU [Suspect]
     Indication: COLON CANCER
     Route: 042
     Dates: start: 20120924, end: 20121008
  6. URFADYN [Concomitant]
     Indication: BENIGN PROSTATIC HYPERPLASIA
     Route: 048
  7. MIRAPEXIN [Concomitant]
     Indication: PARKINSON^S DISEASE
     Route: 048
  8. AZILECT [Concomitant]
     Indication: PARKINSON^S DISEASE
     Route: 048
  9. TAMSULOSINE [Concomitant]
     Indication: BENIGN PROSTATIC HYPERPLASIA
     Route: 048
  10. MEDROL [Concomitant]
     Indication: ANTIEMETIC SUPPORTIVE CARE
     Route: 048

REACTIONS (2)
  - General physical health deterioration [Fatal]
  - Asthenia [Recovered/Resolved]
